FAERS Safety Report 16084822 (Version 1)
Quarter: 2019Q1

REPORT INFORMATION
  Report Type: Spontaneous
  Country: US (occurrence: US)
  Receive Date: 20190318
  Receipt Date: 20190318
  Transmission Date: 20190418
  Serious: No
  Sender: FDA-Public Use
  Company Number: US-AVADEL SPECIALTY PHARMACEUTICALS, LLC-2018AVA00558

PATIENT
  Age: 81 Year
  Sex: Male
  Weight: 86.17 kg

DRUGS (7)
  1. UNSPECIFIED BLOOD PRESSURE MEDICATION [Concomitant]
     Active Substance: UNSPECIFIED INGREDIENT
  2. UNSPECIFIED CHOLESTEROL MEDICATION [Concomitant]
     Active Substance: UNSPECIFIED INGREDIENT
     Indication: BLOOD CHOLESTEROL INCREASED
  3. NOCTIVA [Suspect]
     Active Substance: DESMOPRESSIN ACETATE
     Dosage: 0.83 ?G EVERY OTHER DAY OR EVERY 3RD DAY
     Route: 045
     Dates: start: 201812, end: 201812
  4. UNSPECIFIED DIABETES MEDICATION [Concomitant]
  5. UNSPECIFIED ACID REFLUX MEDICATION [Concomitant]
  6. NOCTIVA [Suspect]
     Active Substance: DESMOPRESSIN ACETATE
     Indication: NOCTURIA
     Dosage: 0.83 ?G, 1X/DAY, ABOUT 30 MINUTES BEFORE BEDTIME
     Route: 045
     Dates: start: 20181129, end: 201812
  7. NOCTIVA [Suspect]
     Active Substance: DESMOPRESSIN ACETATE
     Dosage: 0.83 ?G, 1X/DAY, ABOUT 30 MINUTES BEFORE BEDTIME
     Route: 045
     Dates: start: 201812

REACTIONS (5)
  - Product preparation issue [Recovered/Resolved]
  - Product packaging quantity issue [Recovered/Resolved]
  - Product storage error [Recovered/Resolved]
  - Inappropriate schedule of product administration [Recovered/Resolved]
  - Nocturia [Recovered/Resolved]

NARRATIVE: CASE EVENT DATE: 20181127
